FAERS Safety Report 5007570-3 (Version None)
Quarter: 2006Q2

REPORT INFORMATION
  Report Type: 
  Country: None (occurrence: None)
  Receive Date: 20060522
  Receipt Date: 20051215
  Transmission Date: 20061013
  Serious: Yes (Other)
  Sender: FDA-Public Use
  Company Number: FR-BRISTOL-MYERS SQUIBB COMPANY-13224787

PATIENT
  Age: 62 Year
  Sex: Male

DRUGS (13)
  1. ERBITUX [Suspect]
     Indication: NON-SMALL CELL LUNG CANCER
     Route: 041
     Dates: start: 20051214
  2. CISPLATIN [Suspect]
     Indication: NON-SMALL CELL LUNG CANCER
     Route: 042
     Dates: start: 20051214
  3. VINORELBINE [Suspect]
     Indication: NON-SMALL CELL LUNG CANCER
     Route: 042
     Dates: start: 20051214
  4. ASPIRIN [Concomitant]
  5. TENORMIN [Concomitant]
  6. GLICLAZIDE [Concomitant]
  7. LOXEN [Concomitant]
  8. DOLIPRANE [Concomitant]
  9. GLUCOPHAGE [Concomitant]
  10. RAMIPRIL [Concomitant]
  11. SIMVASTATIN [Concomitant]
  12. ARANESP [Concomitant]
  13. METOCLOPRAMIDE [Concomitant]

REACTIONS (1)
  - HYPERTENSION [None]
